FAERS Safety Report 9357896 (Version 1)
Quarter: 2013Q2

REPORT INFORMATION
  Report Type: Spontaneous
  Country: US (occurrence: None)
  Receive Date: 20130619
  Receipt Date: 20130619
  Transmission Date: 20140414
  Serious: No
  Sender: FDA-Public Use
  Company Number: None

PATIENT
  Sex: Female
  Weight: 66.68 kg

DRUGS (2)
  1. BUPROPION [Suspect]
     Indication: ANXIETY
     Route: 048
     Dates: start: 20130219, end: 20130604
  2. BUPROPION [Suspect]
     Indication: DEPRESSION
     Route: 048
     Dates: start: 20130219, end: 20130604

REACTIONS (1)
  - Irritability [None]
